FAERS Safety Report 25675086 (Version 1)
Quarter: 2025Q3

REPORT INFORMATION
  Report Type: Spontaneous
  Country: EU (occurrence: EU)
  Receive Date: 20250813
  Receipt Date: 20250813
  Transmission Date: 20251020
  Serious: Yes (Life-Threatening, Hospitalization)
  Sender: PANACEA BIOTEC PHARMA LIMITED
  Company Number: EU-PBT-010664

PATIENT
  Age: 61 Year
  Sex: Male

DRUGS (1)
  1. TACROLIMUS [Suspect]
     Active Substance: TACROLIMUS
     Indication: Prophylaxis against transplant rejection
     Route: 065
     Dates: start: 2016

REACTIONS (1)
  - Kaposi sarcoma inflammatory cytokine syndrome [Recovered/Resolved]

NARRATIVE: CASE EVENT DATE: 20170301
